FAERS Safety Report 8269759-X (Version None)
Quarter: 2012Q2

REPORT INFORMATION
  Report Type: 
  Country: None (occurrence: None)
  Receive Date: 20120406
  Receipt Date: 20120327
  Transmission Date: 20120825
  Serious: Yes (Hospitalization, Other)
  Sender: FDA-Public Use
  Company Number: DSU-2012-02445

PATIENT
  Age: 82 Year
  Sex: Female
  Weight: 55.7924 kg

DRUGS (13)
  1. PHENOTHIAZINE (UNSPECIFIED MEDICATION) (PHENOTHIAZINE DERIVATIVES) [Suspect]
     Dates: start: 20120101, end: 20120101
  2. PLAVIX [Concomitant]
  3. ASPIRIN [Concomitant]
  4. MAGNESIUM (MAGNESIUM) (MAGNESIUM) [Concomitant]
  5. BENICAR HCT [Suspect]
     Indication: HYPERTENSION
     Dosage: 40/25MG (QD), PER ORAL
     Route: 048
     Dates: end: 20120101
  6. CLONIDINE (CLONIDINE)(0.1 MILLIGRAM (CLONIDINE) [Concomitant]
  7. PRAVASTATIN (PRAVASTATIN) (40 MILLIGRAM) (PRAVASTATIN) [Concomitant]
  8. BENICAR [Suspect]
     Indication: HYPERTENSION
     Dosage: 40 MG (40 MG, QD), PER ORAL
     Route: 048
     Dates: start: 20120101
  9. LORATADINE (LORATADINE) (10 MILLIGRAM) (LORATADINE) [Concomitant]
  10. PRESERVISION (ASCORBIC ACID, TOCOPHERYL ACETATE, XANTOFYL, ZINC OXIDE, [Concomitant]
  11. FAMOTIDINE (FAMOTIDINE) (20 MILLIGRAM) (FAMOTIDINE) [Concomitant]
  12. ATENOLOL (ATENOLOL) (50 MILLIGRAM ) (ATENOLOL) [Concomitant]
  13. BUMEX (BUMETANIDE) (1 MILLIGRAM) (BUMETANIDE) [Concomitant]

REACTIONS (8)
  - NONSPECIFIC REACTION [None]
  - BLOOD PRESSURE SYSTOLIC INCREASED [None]
  - DRUG INTOLERANCE [None]
  - CONVULSION [None]
  - MUSCLE SPASMS [None]
  - WEIGHT INCREASED [None]
  - ALCOHOL USE [None]
  - RENAL ARTERY OCCLUSION [None]
